FAERS Safety Report 20642453 (Version 1)
Quarter: 2022Q1

REPORT INFORMATION
  Report Type: Spontaneous
  Country: US (occurrence: None)
  Receive Date: 20220325
  Receipt Date: 20220325
  Transmission Date: 20220423
  Serious: Yes (Hospitalization)
  Sender: FDA-Public Use
  Company Number: None

PATIENT
  Age: 98 Year
  Sex: Female
  Weight: 62 kg

DRUGS (1)
  1. TECHNETIUM TC-99M [Suspect]
     Active Substance: TECHNETIUM TC-99M
     Dosage: 1 MCI
     Dates: end: 20220303

REACTIONS (7)
  - Swelling [None]
  - Erythema [None]
  - Glossodynia [None]
  - Dysphagia [None]
  - Dysarthria [None]
  - Oedema mouth [None]
  - Cyanosis [None]

NARRATIVE: CASE EVENT DATE: 20220305
